FAERS Safety Report 9030303 (Version 1)
Quarter: 2013Q1

REPORT INFORMATION
  Report Type: Spontaneous
  Country: GB (occurrence: GB)
  Receive Date: 20130122
  Receipt Date: 20130122
  Transmission Date: 20140127
  Serious: Yes (Other)
  Sender: FDA-Public Use
  Company Number: PHHY2013GB004921

PATIENT
  Sex: Female

DRUGS (2)
  1. LISINOPRIL [Suspect]
  2. PREDNISOLONE [Interacting]
     Indication: TEMPORAL ARTERITIS

REACTIONS (10)
  - Renal failure chronic [Unknown]
  - Blood potassium increased [Unknown]
  - Blood creatine increased [Unknown]
  - Red blood cell sedimentation rate increased [Unknown]
  - Malaise [Unknown]
  - Pollakiuria [Unknown]
  - Chromaturia [Unknown]
  - Pyuria [Unknown]
  - Kidney infection [Recovered/Resolved]
  - Drug interaction [Unknown]
